FAERS Safety Report 5723429-8 (Version None)
Quarter: 2008Q2

REPORT INFORMATION
  Report Type: 
  Country: None (occurrence: None)
  Receive Date: 20080430
  Receipt Date: 20080421
  Transmission Date: 20081010
  Serious: Yes (Other)
  Sender: FDA-Public Use
  Company Number: PHHY2008JP06060

PATIENT
  Sex: Female

DRUGS (3)
  1. PARLODEL [Suspect]
     Indication: PARKINSONISM
     Route: 048
  2. SYMMETREL [Suspect]
     Indication: PARKINSONISM
     Route: 048
  3. MADOPAR [Concomitant]
     Indication: PARKINSONISM

REACTIONS (3)
  - BRADYCARDIA [None]
  - DYSPNOEA [None]
  - PHARYNGEAL OEDEMA [None]
